FAERS Safety Report 23259570 (Version 1)
Quarter: 2023Q4

REPORT INFORMATION
  Report Type: Spontaneous
  Country: US (occurrence: None)
  Receive Date: 20231204
  Receipt Date: 20231204
  Transmission Date: 20240110
  Serious: Yes (Death)
  Sender: FDA-Public Use
  Company Number: None

PATIENT
  Age: 83 Year
  Sex: Female

DRUGS (3)
  1. IMATINIB [Suspect]
     Active Substance: IMATINIB
     Indication: Breast cancer
     Dosage: OTHER QUANTITY : 100-200MG;?FREQUENCY : DAILY;?
     Route: 048
     Dates: start: 20230804, end: 20230807
  2. TYLENOL [Concomitant]
     Active Substance: ACETAMINOPHEN
  3. SUNITINIB [Concomitant]
     Active Substance: SUNITINIB

REACTIONS (1)
  - Death [None]

NARRATIVE: CASE EVENT DATE: 20231103
